FAERS Safety Report 9574534 (Version 2)
Quarter: 2013Q4

REPORT INFORMATION
  Report Type: Report from Study
  Country: JP (occurrence: JP)
  Receive Date: 20131001
  Receipt Date: 20131014
  Transmission Date: 20140711
  Serious: Yes (Death, Hospitalization)
  Sender: FDA-Public Use
  Company Number: JP-TAKEDA-2013TJP001315

PATIENT
  Age: 77 Year
  Sex: Male

DRUGS (13)
  1. LANSOPRAZOLE [Suspect]
     Indication: PROPHYLAXIS AGAINST GASTROINTESTINAL ULCER
     Dosage: 15 MG, QD
     Route: 048
     Dates: start: 20120511
  2. BAYASPIRIN [Concomitant]
     Indication: THROMBOSIS PROPHYLAXIS
     Route: 048
  3. BAYASPIRIN [Concomitant]
     Route: 048
     Dates: end: 20120528
  4. TENORMIN [Concomitant]
     Route: 048
  5. TENORMIN [Concomitant]
     Route: 048
  6. THEODUR [Concomitant]
     Route: 048
  7. THEODUR [Concomitant]
     Route: 048
  8. MUCODYNE [Concomitant]
     Route: 048
  9. KETAS [Concomitant]
     Route: 048
  10. KETAS [Concomitant]
     Route: 048
  11. BISOLVON [Concomitant]
     Route: 048
  12. CLEANAL [Concomitant]
     Route: 048
  13. CLEANAL [Concomitant]
     Route: 048

REACTIONS (2)
  - Emphysema [Fatal]
  - Condition aggravated [Fatal]
